FAERS Safety Report 9605693 (Version 1)
Quarter: 2013Q4

REPORT INFORMATION
  Report Type: Spontaneous
  Country: US (occurrence: US)
  Receive Date: 20131008
  Receipt Date: 20131008
  Transmission Date: 20140711
  Serious: Yes (Hospitalization)
  Sender: FDA-Public Use
  Company Number: US-ABBVIE-13P-163-1155033-00

PATIENT
  Age: 64 Year
  Sex: Female

DRUGS (2)
  1. DEPAKOTE ER [Suspect]
     Indication: HEADACHE
  2. DEPAKOTE ER [Suspect]

REACTIONS (4)
  - Gait disturbance [Recovering/Resolving]
  - Tremor [Unknown]
  - Trichorrhexis [Unknown]
  - Headache [Unknown]
